FAERS Safety Report 4649451-0 (Version None)
Quarter: 2005Q2

REPORT INFORMATION
  Report Type: 
  Country: None (occurrence: None)
  Receive Date: 20050427
  Receipt Date: 20050411
  Transmission Date: 20051028
  Serious: Yes (Life-Threatening)
  Sender: FDA-Public Use
  Company Number: A01200501224

PATIENT
  Age: 30 Year
  Sex: Male

DRUGS (3)
  1. STILNOCT - (ZOLPIDEM TARTRATE) [Suspect]
     Dosage: HIGH DOSES ORAL
     Route: 048
     Dates: start: 19980101
  2. FLUOXETINE [Concomitant]
  3. CITALOPRAM HYDROBROMIDE [Concomitant]

REACTIONS (8)
  - AMNESIA [None]
  - AUTOMATISM [None]
  - BLOOD ALCOHOL INCREASED [None]
  - DRUG ABUSER [None]
  - HALLUCINATION, VISUAL [None]
  - OVERDOSE [None]
  - PSYCHOTIC DISORDER [None]
  - ROAD TRAFFIC ACCIDENT [None]
